FAERS Safety Report 12839065 (Version 4)
Quarter: 2016Q4

REPORT INFORMATION
  Report Type: Report from Study
  Country: CA (occurrence: CA)
  Receive Date: 20161012
  Receipt Date: 20161121
  Transmission Date: 20170207
  Serious: Yes (Death, Hospitalization)
  Sender: FDA-Public Use
  Company Number: PHHY2015CA170553

PATIENT
  Age: 50 Year
  Sex: Male

DRUGS (2)
  1. AFINITOR [Suspect]
     Active Substance: EVEROLIMUS
     Indication: PRIMITIVE NEUROECTODERMAL TUMOUR
     Dosage: 10 MG, QD
     Route: 048
     Dates: start: 20151009, end: 2016
  2. SANDOSTATIN LAR DEPOT [Suspect]
     Active Substance: OCTREOTIDE ACETATE
     Indication: CARCINOID TUMOUR
     Dosage: 30 MG, QMO (EVERY 4 WEEKS)
     Route: 030
     Dates: start: 20151126, end: 20160908

REACTIONS (10)
  - Death [Fatal]
  - Heart rate decreased [Unknown]
  - Pancreatic disorder [Unknown]
  - Pyrexia [Unknown]
  - Gallbladder disorder [Unknown]
  - Respiratory rate increased [Unknown]
  - Cholecystitis [Unknown]
  - Blood pressure increased [Unknown]
  - Blood pressure fluctuation [Unknown]
  - Product use issue [Unknown]

NARRATIVE: CASE EVENT DATE: 20151009
